FAERS Safety Report 7694335-7 (Version None)
Quarter: 2011Q3

REPORT INFORMATION
  Report Type: 
  Country: None (occurrence: None)
  Receive Date: 20110819
  Receipt Date: 20110817
  Transmission Date: 20111222
  Serious: Yes (Death)
  Sender: FDA-Public Use
  Company Number: MW-ABBOTT-11P-100-0847438-00

PATIENT
  Age: 44 Year
  Sex: Female
  Weight: 42.5 kg

DRUGS (4)
  1. ALUVIA TABLETS 200MG/50MG [Suspect]
     Indication: HIV INFECTION
     Dosage: 200/50 MG
     Route: 048
     Dates: start: 20080408
  2. TENOFOVIR DISOPROXIL FUMARATE [Concomitant]
     Indication: HIV INFECTION
     Dates: start: 20080408, end: 20110809
  3. LAMIVUDINE + ZIDOVUDINE [Concomitant]
     Indication: HIV INFECTION
     Dosage: 150/300 MG
     Dates: start: 20051220, end: 20110809
  4. COMBIVIR [Concomitant]
     Indication: HIV INFECTION
     Dates: start: 20080408

REACTIONS (1)
  - DEATH [None]
